FAERS Safety Report 5267821-7 (Version None)
Quarter: 2007Q1

REPORT INFORMATION
  Report Type: 
  Country: None (occurrence: None)
  Receive Date: 20070316
  Receipt Date: 20070307
  Transmission Date: 20070707
  Serious: Yes (Other)
  Sender: FDA-Public Use
  Company Number: SE-PFIZER INC-2007018368

PATIENT
  Age: 60 Year
  Sex: Male

DRUGS (9)
  1. PREDNISOLONE [Suspect]
     Indication: CARDIAC OPERATION
     Dosage: DAILY DOSE:45MG-FREQ:DAILY
  2. FLECAINIDE ACETATE [Concomitant]
  3. CANDESARTAN [Concomitant]
  4. SULFAMETHOXAZOLE W/TRIMETHOPRIM [Concomitant]
  5. CALCICHEW [Concomitant]
  6. ALFACALCIDOL [Concomitant]
  7. OMEPRAZOLE [Concomitant]
  8. FUROSEMIDE [Concomitant]
  9. SODIUM BICARBONATE [Concomitant]

REACTIONS (2)
  - CATARACT [None]
  - TREMOR [None]
